FAERS Safety Report 4360985-9 (Version None)
Quarter: 2004Q2

REPORT INFORMATION
  Report Type: 
  Country: None (occurrence: None)
  Receive Date: 20040517
  Receipt Date: 20040504
  Transmission Date: 20050107
  Serious: Yes (Hospitalization)
  Sender: FDA-Public Use
  Company Number: 2004AC00094

PATIENT
  Age: 52 Year
  Sex: Male

DRUGS (3)
  1. LIDOCAINE [Suspect]
     Indication: ANAESTHESIA
     Dosage: 5 ML
  2. HYALURONIDASE [Suspect]
     Dosage: 1500 U DAILY
  3. CEFUROXIME [Concomitant]

REACTIONS (9)
  - CELLULITIS ORBITAL [None]
  - CONJUNCTIVAL OEDEMA [None]
  - EXOPHTHALMOS [None]
  - EYE MOVEMENT DISORDER [None]
  - EYE SWELLING [None]
  - EYELID OEDEMA [None]
  - HYPERSENSITIVITY [None]
  - INFECTION [None]
  - INFLAMMATION [None]
